FAERS Safety Report 4933085-4 (Version None)
Quarter: 2006Q1

REPORT INFORMATION
  Report Type: 
  Country: None (occurrence: None)
  Receive Date: 20060301
  Receipt Date: 20060215
  Transmission Date: 20060701
  Serious: Yes (Hospitalization)
  Sender: FDA-Public Use
  Company Number: EM2006-0106

PATIENT
  Age: 64 Year
  Sex: Female

DRUGS (2)
  1. PROLEUKIN [Suspect]
     Indication: METASTATIC MALIGNANT MELANOMA
     Dosage: CONT IV INFUS
     Route: 042
     Dates: start: 20060131, end: 20060209
  2. TEMOZOLOMIDE(TEMOZOLOMIDE) [Suspect]
     Indication: MALIGNANT MELANOMA

REACTIONS (16)
  - ASTHENIA [None]
  - BAND NEUTROPHIL PERCENTAGE INCREASED [None]
  - BLOOD ALBUMIN DECREASED [None]
  - BLOOD ALKALINE PHOSPHATASE INCREASED [None]
  - BLOOD UREA DECREASED [None]
  - DEHYDRATION [None]
  - DIZZINESS [None]
  - HAEMATOCRIT DECREASED [None]
  - HAEMOGLOBIN DECREASED [None]
  - LYMPHOCYTE PERCENTAGE INCREASED [None]
  - MONOCYTE PERCENTAGE INCREASED [None]
  - NAUSEA [None]
  - NEUTROPHIL COUNT DECREASED [None]
  - PROTEIN TOTAL DECREASED [None]
  - SEPSIS [None]
  - VOMITING [None]
